FAERS Safety Report 8247550-8 (Version None)
Quarter: 2012Q1

REPORT INFORMATION
  Report Type: 
  Country: None (occurrence: None)
  Receive Date: 20120330
  Receipt Date: 20120316
  Transmission Date: 20120608
  Serious: Yes (Other)
  Sender: FDA-Public Use
  Company Number: NO-CELGENEUS-122-21880-12031874

PATIENT
  Sex: Female
  Weight: 47 kg

DRUGS (7)
  1. PREDNISONE TAB [Suspect]
     Indication: MULTIPLE MYELOMA
     Route: 065
  2. REVLIMID [Suspect]
     Indication: MULTIPLE MYELOMA
     Route: 048
     Dates: start: 20100113, end: 20110106
  3. FLUVASTATIN [Concomitant]
     Route: 048
     Dates: start: 20100101
  4. MELPHALAN HYDROCHLORIDE [Suspect]
     Indication: MULTIPLE MYELOMA
     Route: 065
  5. IRBESARTAN [Concomitant]
     Dosage: 300/12.5 MG
     Route: 048
     Dates: start: 20100101
  6. LISINOPRIL [Concomitant]
     Route: 048
     Dates: start: 20100101
  7. METFORMIN HCL [Concomitant]
     Route: 048
     Dates: start: 20090101

REACTIONS (1)
  - COLON CANCER METASTATIC [None]
